FAERS Safety Report 19607830 (Version 1)
Quarter: 2021Q3

REPORT INFORMATION
  Report Type: Spontaneous
  Country: US (occurrence: US)
  Receive Date: 20210726
  Receipt Date: 20210726
  Transmission Date: 20211014
  Serious: Yes (Hospitalization, Other)
  Sender: FDA-Public Use
  Company Number: US-CELLTRION INC.-2021US009887

PATIENT

DRUGS (1)
  1. INFLIXIMAB (UNKNOWN) [Suspect]
     Active Substance: INFLIXIMAB
     Indication: CROHN^S DISEASE
     Dosage: UNK

REACTIONS (7)
  - Streptococcal bacteraemia [Recovered/Resolved]
  - Brain abscess [Recovered/Resolved]
  - Immunosuppression [Unknown]
  - Paraspinal abscess [Recovered/Resolved]
  - Therapy change [Unknown]
  - Staphylococcal infection [Recovered/Resolved]
  - Escherichia infection [Recovered/Resolved]
